FAERS Safety Report 7892330 (Version 4)
Quarter: 2014Q1

REPORT INFORMATION
  Report Type: Spontaneous
  Country: US (occurrence: US)
  Receive Date: 20110411
  Receipt Date: 20140310
  Transmission Date: 20141002
  Serious: Yes (Hospitalization)
  Sender: FDA-Public Use
  Company Number: US-BIOGENIDEC-2011BI012936

PATIENT
  Age: 52 Year
  Sex: Female

DRUGS (1)
  1. AVONEX [Suspect]
     Indication: MULTIPLE SCLEROSIS
     Route: 030
     Dates: start: 20010209

REACTIONS (13)
  - Endometrial cancer stage I [Recovered/Resolved]
  - Migraine [Recovered/Resolved]
  - Neuropathy peripheral [Not Recovered/Not Resolved]
  - Stress [Not Recovered/Not Resolved]
  - Raynaud^s phenomenon [Not Recovered/Not Resolved]
  - Multiple sclerosis [Unknown]
  - Hypoaesthesia [Recovered/Resolved]
  - Laceration [Recovered/Resolved]
  - Thermal burn [Recovered/Resolved]
  - Fatigue [Not Recovered/Not Resolved]
  - Facial pain [Recovered/Resolved]
  - Pruritus [Recovered/Resolved]
  - Multiple sclerosis relapse [Not Recovered/Not Resolved]
